FAERS Safety Report 6201245-0 (Version None)
Quarter: 2009Q2

REPORT INFORMATION
  Report Type: 
  Country: None (occurrence: None)
  Receive Date: 20090520
  Receipt Date: 20090508
  Transmission Date: 20091009
  Serious: Yes (Other)
  Sender: FDA-Public Use
  Company Number: 2009SP005318

PATIENT
  Age: 67 Year
  Sex: Female

DRUGS (5)
  1. MIRALAX [Suspect]
     Dosage: PO
     Route: 048
  2. MILK OF MAGNESIA TAB [Suspect]
  3. CYMBALTA (CON.) [Concomitant]
  4. LORAZEPAM (CON.) [Concomitant]
  5. MIRTAZAPINE (CON.) [Concomitant]

REACTIONS (3)
  - ASTHENIA [None]
  - CONDITION AGGRAVATED [None]
  - CONVULSION [None]
